FAERS Safety Report 17016418 (Version 2)
Quarter: 2020Q1

REPORT INFORMATION
  Report Type: Report from Study
  Country: BR (occurrence: BR)
  Receive Date: 20191111
  Receipt Date: 20200330
  Transmission Date: 20200409
  Serious: Yes (Hospitalization, Other)
  Sender: FDA-Public Use
  Company Number: PHHY2019BR019232

PATIENT
  Sex: Female
  Weight: 55 kg

DRUGS (3)
  1. GILENYA [Suspect]
     Active Substance: FINGOLIMOD HYDROCHLORIDE
     Dosage: UNK UNK, QOD
     Route: 048
     Dates: start: 201907
  2. GILENYA [Suspect]
     Active Substance: FINGOLIMOD HYDROCHLORIDE
     Dosage: UNK, QD
     Route: 065
     Dates: start: 201808
  3. GILENYA [Suspect]
     Active Substance: FINGOLIMOD HYDROCHLORIDE
     Indication: MULTIPLE SCLEROSIS
     Dosage: 0.5 MG, UNK
     Route: 048
     Dates: start: 2018

REACTIONS (17)
  - Cough [Not Recovered/Not Resolved]
  - Lymphocyte count decreased [Recovered/Resolved]
  - Emotional distress [Unknown]
  - Malaise [Unknown]
  - Fatigue [Unknown]
  - Prescribed underdose [Unknown]
  - Dizziness postural [Recovered/Resolved]
  - Decreased immune responsiveness [Not Recovered/Not Resolved]
  - Dysphonia [Not Recovered/Not Resolved]
  - Asthenia [Recovered/Resolved]
  - Pharyngitis [Not Recovered/Not Resolved]
  - Dyspnoea [Not Recovered/Not Resolved]
  - Decreased immune responsiveness [Recovered/Resolved]
  - Rhinitis [Not Recovered/Not Resolved]
  - Throat irritation [Unknown]
  - Lymphocyte count decreased [Not Recovered/Not Resolved]
  - Vomiting [Not Recovered/Not Resolved]

NARRATIVE: CASE EVENT DATE: 2018
